FAERS Safety Report 7124245-5 (Version None)
Quarter: 2010Q4

REPORT INFORMATION
  Report Type: 
  Country: None (occurrence: None)
  Receive Date: 20101126
  Receipt Date: 20101115
  Transmission Date: 20110411
  Serious: Yes (Hospitalization)
  Sender: FDA-Public Use
  Company Number: GXKR2010DK12748

PATIENT
  Sex: Male
  Weight: 105 kg

DRUGS (11)
  1. SIMVASTATIN [Suspect]
     Indication: DYSLIPIDAEMIA
     Dates: start: 20050101, end: 20100728
  2. LANSOPRAZOLE [Concomitant]
     Dates: start: 20100101
  3. DIGOXIN ^DAK^ [Concomitant]
     Indication: ATRIAL FIBRILLATION
     Dosage: 250 MICROGRAM(S)
     Route: 048
  4. KALEORID [Concomitant]
     Route: 048
  5. MAREVAN [Concomitant]
     Dosage: 2.5 MG
     Route: 048
  6. GLYTRIN [Concomitant]
     Dosage: 0.4 MG/DOSE
     Route: 060
  7. MOXONAT [Concomitant]
     Route: 048
  8. CENTYL MED KALIUMKLORID [Concomitant]
     Route: 048
  9. METOPROLOL SUCCINATE [Concomitant]
     Route: 048
  10. SPIRON [Concomitant]
     Route: 048
  11. COVERSYL NOVUM [Concomitant]
     Route: 048

REACTIONS (1)
  - INTERSTITIAL LUNG DISEASE [None]
